FAERS Safety Report 8576427-3 (Version None)
Quarter: 2012Q3

REPORT INFORMATION
  Report Type: 
  Country: None (occurrence: None)
  Receive Date: 20120807
  Receipt Date: 20120730
  Transmission Date: 20120928
  Serious: Yes (Hospitalization)
  Sender: FDA-Public Use
  Company Number: DE-UCBSA-050693

PATIENT
  Age: 71 Year
  Sex: Female
  Weight: 102 kg

DRUGS (24)
  1. OLMESARTAN MEDOXOMIL [Concomitant]
     Dosage: 20/25 MG
  2. PANTOPRAZOLE [Concomitant]
  3. PREDNISOLONE [Concomitant]
  4. LEFLUNOMIDE [Concomitant]
     Dosage: UNKNOWN DOSE
     Dates: start: 20110201, end: 20110401
  5. HYDROCHLOROTHIAZDE TAB [Concomitant]
     Indication: HYPERTENSION
     Dosage: DOSE :25
  6. TORSEMIDE [Concomitant]
  7. FLECAINIDE ACETATE [Concomitant]
  8. FLECAINIDE ACETATE [Concomitant]
  9. BISOPROLOL FUMARATE [Concomitant]
     Indication: HYPERTENSION
  10. METHOTREXATE [Suspect]
     Indication: RHEUMATOID ARTHRITIS
     Dosage: 15,0 (UNSPECIFIED)
     Route: 048
     Dates: start: 20000101
  11. METHOTREXATE [Suspect]
  12. PREDNISOLONE [Concomitant]
     Dates: start: 20040201
  13. HYDROCHLOROTHIAZDE TAB [Concomitant]
  14. METHOTREXATE [Suspect]
     Dates: start: 20030601
  15. PANTOPRAZOLE [Concomitant]
  16. MARCUMAR [Concomitant]
     Dosage: 3 MG-DEPENDING ON INR
  17. PROLIA [Concomitant]
     Dosage: UNKNOWN DOSE
     Dates: start: 20110301
  18. CIMZIA [Suspect]
     Indication: RHEUMATOID ARTHRITIS
     Route: 058
     Dates: start: 20100601
  19. METHOTREXATE [Suspect]
  20. ALLOPURINOL [Concomitant]
  21. MARCUMAR [Concomitant]
     Dosage: UNKNOWN DOSE
  22. LEFLUNOMIDE [Concomitant]
     Dates: start: 20010501, end: 20070501
  23. LEFLUNOMIDE [Concomitant]
     Dosage: UNKNOWN DOSE
     Dates: start: 20101201, end: 20110101
  24. DICLAC [Concomitant]
     Dosage: STRENGTH:50
     Dates: start: 20040401

REACTIONS (2)
  - ISCHAEMIC STROKE [None]
  - ROTATOR CUFF SYNDROME [None]
